FAERS Safety Report 4364596-0 (Version None)
Quarter: 2004Q2

REPORT INFORMATION
  Report Type: 
  Country: None (occurrence: None)
  Receive Date: 20040525
  Receipt Date: 20040517
  Transmission Date: 20050107
  Serious: Yes (Hospitalization, Disabling)
  Sender: FDA-Public Use
  Company Number: 04-0034NI

PATIENT
  Age: 45 Year
  Sex: Female

DRUGS (3)
  1. NITROLINGUAL PUMPSPRAY [Suspect]
     Indication: CHEST PAIN
     Dosage: SL
     Dates: start: 20040327, end: 20040405
  2. MORPHINE [Concomitant]
  3. PLAVIX [Concomitant]

REACTIONS (4)
  - CEREBROVASCULAR ACCIDENT [None]
  - DELIRIUM [None]
  - HEADACHE [None]
  - VASCULITIS [None]
